FAERS Safety Report 11247291 (Version 1)
Quarter: 2015Q3

REPORT INFORMATION
  Report Type: Spontaneous
  Country: US (occurrence: US)
  Receive Date: 20150708
  Receipt Date: 20150708
  Transmission Date: 20151125
  Serious: Yes (Other)
  Sender: FDA-Public Use
  Company Number: US-SA-2015SA098601

PATIENT
  Age: 64 Year
  Sex: Female

DRUGS (1)
  1. AUBAGIO [Suspect]
     Active Substance: TERIFLUNOMIDE
     Indication: MULTIPLE SCLEROSIS
     Route: 048
     Dates: start: 2014

REACTIONS (9)
  - Nausea [Unknown]
  - Lung infection [Unknown]
  - Oral discomfort [Unknown]
  - Blister [Unknown]
  - Abdominal pain upper [Unknown]
  - Dysuria [Unknown]
  - Chromaturia [Unknown]
  - Rash [Unknown]
  - Photosensitivity reaction [Unknown]
